FAERS Safety Report 4417428-6 (Version None)
Quarter: 2004Q3

REPORT INFORMATION
  Report Type: 
  Country: None (occurrence: None)
  Receive Date: 20040803
  Receipt Date: 20040721
  Transmission Date: 20050211
  Serious: Yes (Hospitalization, Other)
  Sender: FDA-Public Use
  Company Number: 2004042971

PATIENT
  Age: 25 Year
  Sex: Male

DRUGS (1)
  1. GEODON [Suspect]
     Indication: SCHIZOPHRENIA
     Dosage: 160 MG (80 MG, 2 IN 1 D), ORAL
     Route: 048
     Dates: start: 20040309

REACTIONS (8)
  - DYSKINESIA [None]
  - DYSPNOEA [None]
  - DYSTONIA [None]
  - MUSCLE SPASMS [None]
  - MUSCULOSKELETAL STIFFNESS [None]
  - OBSTRUCTIVE AIRWAYS DISORDER [None]
  - THROAT TIGHTNESS [None]
  - TONGUE DISORDER [None]
